FAERS Safety Report 9922461 (Version 1)
Quarter: 2014Q1

REPORT INFORMATION
  Report Type: Spontaneous
  Country: US (occurrence: US)
  Receive Date: 20140225
  Receipt Date: 20140225
  Transmission Date: 20141002
  Serious: No
  Sender: FDA-Public Use
  Company Number: US-MYLANLABS-2013S1002596

PATIENT
  Age: 67 Year
  Sex: Female
  Weight: 81.65 kg

DRUGS (2)
  1. ATENOLOL TABLETS, USP [Suspect]
     Indication: HEART RATE
     Route: 048
     Dates: start: 201301
  2. ATENOLOL TABLETS, USP [Suspect]
     Indication: BLOOD PRESSURE MANAGEMENT
     Route: 048
     Dates: start: 201301

REACTIONS (3)
  - Gait disturbance [Not Recovered/Not Resolved]
  - Speech disorder [Not Recovered/Not Resolved]
  - Reaction to drug excipients [Not Recovered/Not Resolved]
